FAERS Safety Report 24744054 (Version 2)
Quarter: 2024Q4

REPORT INFORMATION
  Report Type: Spontaneous
  Country: CA (occurrence: CA)
  Receive Date: 20241217
  Receipt Date: 20241219
  Transmission Date: 20250115
  Serious: No
  Sender: PFIZER
  Company Number: CA-PFIZER INC-202300176589

PATIENT
  Age: 40 Year
  Sex: Female

DRUGS (3)
  1. ABRILADA [Suspect]
     Active Substance: ADALIMUMAB-AFZB
     Indication: Crohn^s disease
     Dosage: 160MG W0, 80MG W2 THEN 40MG Q 2 WEEKS STARTING W4 - PREFILLED SYRINGE
     Route: 058
     Dates: start: 20221020
  2. ABRILADA [Suspect]
     Active Substance: ADALIMUMAB-AFZB
     Dosage: UNK
     Dates: start: 20241017
  3. ENTOCORT [Concomitant]
     Active Substance: BUDESONIDE
     Dosage: 1 DF
     Dates: start: 202209

REACTIONS (15)
  - Fatigue [Unknown]
  - Increased tendency to bruise [Unknown]
  - Heavy menstrual bleeding [Unknown]
  - Uterine leiomyoma [Unknown]
  - Anal fissure [Recovered/Resolved]
  - Osteoarthritis [Unknown]
  - Abdominal pain [Unknown]
  - Anaemia [Unknown]
  - Emotional disorder [Unknown]
  - Crying [Unknown]
  - Endometriosis [Unknown]
  - Pain [Unknown]
  - Fibroma [Unknown]
  - Spondylitis [Unknown]
  - Thoracic outlet syndrome [Unknown]
